FAERS Safety Report 18168590 (Version 1)
Quarter: 2020Q3

REPORT INFORMATION
  Report Type: Spontaneous
  Country: US (occurrence: US)
  Receive Date: 20200818
  Receipt Date: 20200818
  Transmission Date: 20201103
  Serious: Yes (Hospitalization)
  Sender: FDA-Public Use
  Company Number: PHHY2019US197248

PATIENT
  Age: 81 Year
  Sex: Female

DRUGS (1)
  1. DIGOXIN. [Suspect]
     Active Substance: DIGOXIN
     Indication: CARDIAC AMYLOIDOSIS
     Dosage: UNK
     Route: 065

REACTIONS (5)
  - Supraventricular tachycardia [Unknown]
  - Nodal arrhythmia [Unknown]
  - Toxicity to various agents [Unknown]
  - Extrasystoles [Unknown]
  - Product use in unapproved indication [Unknown]
